FAERS Safety Report 16052927 (Version 1)
Quarter: 2019Q1

REPORT INFORMATION
  Report Type: Report from Study
  Country: None (occurrence: JP)
  Receive Date: 20190308
  Receipt Date: 20190308
  Transmission Date: 20190418
  Serious: Yes (Other)
  Sender: FDA-Public Use
  Company Number: JP-ABBVIE-19K-087-2696297-00

PATIENT
  Sex: Female

DRUGS (2)
  1. ZOLPIDEM TARTRATE. [Concomitant]
     Active Substance: ZOLPIDEM TARTRATE
     Indication: PRODUCT USED FOR UNKNOWN INDICATION
  2. MAVIRET [Suspect]
     Active Substance: GLECAPREVIR\PIBRENTASVIR
     Indication: HEPATITIS C
     Route: 048
     Dates: start: 20190305

REACTIONS (4)
  - Asthenia [Unknown]
  - Cataract [Unknown]
  - Muscle atrophy [Unknown]
  - Sluggishness [Unknown]

NARRATIVE: CASE EVENT DATE: 2019
